FAERS Safety Report 5510935-4 (Version None)
Quarter: 2007Q4

REPORT INFORMATION
  Report Type: 
  Country: None (occurrence: None)
  Receive Date: 20071106
  Receipt Date: 20071106
  Transmission Date: 20080405
  Serious: Yes (Other)
  Sender: FDA-Public Use
  Company Number: None

PATIENT
  Age: 50 Year
  Sex: Female
  Weight: 81.1939 kg

DRUGS (1)
  1. MIRAPEX [Suspect]
     Indication: PARKINSON'S DISEASE
     Dosage: TWO TO FOUR TABLES DAILY PO
     Route: 048
     Dates: start: 19990714, end: 20070920

REACTIONS (1)
  - PATHOLOGICAL GAMBLING [None]
